FAERS Safety Report 17545858 (Version 1)
Quarter: 2020Q1

REPORT INFORMATION
  Report Type: Spontaneous
  Country: US (occurrence: US)
  Receive Date: 20200309
  Receipt Date: 20200309
  Transmission Date: 20200409
  Serious: No
  Sender: FDA-Public Use
  Company Number: None

PATIENT
  Age: 83 Year
  Sex: Female

DRUGS (3)
  1. CAPECITABINE 500MG TABS [Suspect]
     Active Substance: CAPECITABINE
     Indication: LUNG CARCINOMA CELL TYPE UNSPECIFIED STAGE 0
     Dosage: ?          OTHER FREQUENCY:3AM, 2PM ;?
     Route: 048
     Dates: start: 20200110
  2. CAPECITABINE 500MG TABS [Suspect]
     Active Substance: CAPECITABINE
     Indication: BREAST CANCER FEMALE
     Dosage: ?          OTHER FREQUENCY:3AM, 2PM ;?
     Route: 048
     Dates: start: 20200110
  3. CAPECITABINE 500MG TABS [Suspect]
     Active Substance: CAPECITABINE
     Indication: LUNG NEOPLASM MALIGNANT
     Dosage: ?          OTHER FREQUENCY:3AM, 2PM ;?
     Route: 048
     Dates: start: 20200110

REACTIONS (2)
  - Skin fissures [None]
  - Therapy change [None]

NARRATIVE: CASE EVENT DATE: 20200309
